FAERS Safety Report 20650768 (Version 1)
Quarter: 2022Q1

REPORT INFORMATION
  Report Type: Spontaneous
  Country: US (occurrence: US)
  Receive Date: 20220329
  Receipt Date: 20220329
  Transmission Date: 20220423
  Serious: No
  Sender: FDA-Public Use
  Company Number: US-PFIZER INC-202100958373

PATIENT
  Age: 65 Year
  Sex: Female

DRUGS (2)
  1. PREMARIN [Suspect]
     Active Substance: ESTROGENS, CONJUGATED
     Indication: Oestrogen deficiency
     Dosage: 1G (INSERT HALF OF APPLICATOR FULL VAGINALLY 3 TIMES PER WEEK)
     Route: 067
  2. ESTRADIOL [Concomitant]
     Active Substance: ESTRADIOL
     Indication: Oestrogen deficiency

REACTIONS (2)
  - Discomfort [Unknown]
  - Off label use [Unknown]
